FAERS Safety Report 19420106 (Version 1)
Quarter: 2021Q2

REPORT INFORMATION
  Report Type: Spontaneous
  Country: US (occurrence: US)
  Receive Date: 20210615
  Receipt Date: 20210615
  Transmission Date: 20210717
  Serious: Yes (Hospitalization)
  Sender: FDA-Public Use
  Company Number: US-ELI_LILLY_AND_COMPANY-US202009001105

PATIENT
  Sex: Male

DRUGS (16)
  1. HUMALOG KWIKPEN [Suspect]
     Active Substance: INSULIN LISPRO
     Indication: TYPE 2 DIABETES MELLITUS
     Dosage: UNK, UNKNOWN
     Route: 058
     Dates: start: 2017
  2. HUMALOG KWIKPEN [Suspect]
     Active Substance: INSULIN LISPRO
     Dosage: 100 U, UNKNOWN
     Route: 058
  3. LANTUS [Concomitant]
     Active Substance: INSULIN GLARGINE
     Indication: TYPE 2 DIABETES MELLITUS
  4. NITROGLYCERIN. [Concomitant]
     Active Substance: NITROGLYCERIN
     Indication: CHEST PAIN
  5. ISOSORBIDE MONONITRATE. [Concomitant]
     Active Substance: ISOSORBIDE MONONITRATE
     Indication: CHEST PAIN
  6. NOVOLOG [Concomitant]
     Active Substance: INSULIN ASPART
     Indication: PRODUCT USED FOR UNKNOWN INDICATION
  7. LEVEMIR [Concomitant]
     Active Substance: INSULIN DETEMIR
     Indication: PRODUCT USED FOR UNKNOWN INDICATION
  8. ASPIRIN (E.C.) [Concomitant]
     Active Substance: ASPIRIN
     Indication: CARDIAC DISORDER
  9. VICTOZA [Concomitant]
     Active Substance: LIRAGLUTIDE
     Indication: PRODUCT USED FOR UNKNOWN INDICATION
  10. HUMALOG KWIKPEN [Suspect]
     Active Substance: INSULIN LISPRO
     Indication: TYPE 2 DIABETES MELLITUS
     Dosage: UNK, UNKNOWN
     Route: 058
     Dates: start: 2017
  11. TRULICITY [Suspect]
     Active Substance: DULAGLUTIDE
     Indication: TYPE 2 DIABETES MELLITUS
     Dosage: 0.75 MG, UNKNOWN
     Route: 065
  12. HUMALOG [Suspect]
     Active Substance: INSULIN LISPRO
     Indication: TYPE 2 DIABETES MELLITUS
     Dosage: UNK, PRN
     Route: 058
  13. TRULICITY [Suspect]
     Active Substance: DULAGLUTIDE
     Indication: TYPE 2 DIABETES MELLITUS
     Dosage: 1.5 MG, UNKNOWN
     Route: 065
     Dates: start: 202003
  14. GLUCAGON. [Suspect]
     Active Substance: GLUCAGON
     Indication: TYPE 2 DIABETES MELLITUS
     Dosage: UNK, UNKNOWN
     Route: 065
  15. METFORMIN ER [Concomitant]
     Active Substance: METFORMIN HYDROCHLORIDE
     Indication: TYPE 2 DIABETES MELLITUS
     Dosage: 2000 MG, DAILY
  16. HUMALOG KWIKPEN [Suspect]
     Active Substance: INSULIN LISPRO
     Dosage: 100 U, UNKNOWN
     Route: 058

REACTIONS (3)
  - Nausea [Unknown]
  - Blood glucose decreased [Unknown]
  - Blood glucose increased [Unknown]
